FAERS Safety Report 12621930 (Version 1)
Quarter: 2016Q3

REPORT INFORMATION
  Report Type: Spontaneous
  Country: US (occurrence: US)
  Receive Date: 20160804
  Receipt Date: 20160804
  Transmission Date: 20161109
  Serious: Yes (Other)
  Sender: FDA-Public Use
  Company Number: US-PFIZER INC-2016368661

PATIENT
  Age: 40 Year
  Sex: Female

DRUGS (3)
  1. TRAZODONE [Concomitant]
     Active Substance: TRAZODONE HYDROCHLORIDE
     Dosage: UNK
  2. PAXIL [Concomitant]
     Active Substance: PAROXETINE HYDROCHLORIDE
     Indication: DEPRESSION
     Dosage: 20 MG, UNK
     Dates: start: 2008
  3. CHANTIX [Suspect]
     Active Substance: VARENICLINE TARTRATE
     Indication: SMOKING CESSATION THERAPY
     Dosage: UNK
     Route: 048
     Dates: start: 201101, end: 201108

REACTIONS (14)
  - Malaise [Not Recovered/Not Resolved]
  - Emphysema [Unknown]
  - Nightmare [Recovered/Resolved]
  - Condition aggravated [Unknown]
  - Chronic obstructive pulmonary disease [Unknown]
  - Loss of consciousness [Unknown]
  - Dyspnoea [Unknown]
  - Neuropathy peripheral [Unknown]
  - Lung disorder [Unknown]
  - Depression [Unknown]
  - Condition aggravated [Unknown]
  - Abnormal dreams [Recovered/Resolved]
  - Arthritis [Unknown]
  - Pelvic mass [Unknown]

NARRATIVE: CASE EVENT DATE: 2011
